FAERS Safety Report 18586021 (Version 1)
Quarter: 2020Q4

REPORT INFORMATION
  Report Type: Spontaneous
  Country: US (occurrence: US)
  Receive Date: 20201207
  Receipt Date: 20201207
  Transmission Date: 20210114
  Serious: Yes (Death)
  Sender: FDA-Public Use
  Company Number: US-PFIZER INC-2020339153

PATIENT
  Age: 43 Year
  Sex: Female

DRUGS (1)
  1. RETACRIT [Suspect]
     Active Substance: EPOETIN ALFA-EPBX
     Dosage: 2000 IU (3 X WEEKLY)
     Route: 042
     Dates: start: 20200821

REACTIONS (1)
  - Death [Fatal]

NARRATIVE: CASE EVENT DATE: 20201202
